FAERS Safety Report 8456831-4 (Version None)
Quarter: 2012Q2

REPORT INFORMATION
  Report Type: 
  Country: None (occurrence: None)
  Receive Date: 20120621
  Receipt Date: 20120619
  Transmission Date: 20120825
  Serious: No
  Sender: FDA-Public Use
  Company Number: US-PFIZER INC-2012148773

PATIENT
  Age: 32 Year
  Sex: Female
  Weight: 86.168 kg

DRUGS (3)
  1. LYRICA [Suspect]
     Indication: FIBROMYALGIA
     Dosage: UNK
  2. LYRICA [Suspect]
     Dosage: 75 MG, 2X/DAY
     Dates: start: 20120301
  3. EFFEXOR [Concomitant]
     Indication: ANXIETY
     Dosage: 150 MG, DAILY

REACTIONS (2)
  - SOMNOLENCE [None]
  - FATIGUE [None]
